FAERS Safety Report 6121002-3 (Version None)
Quarter: 2009Q1

REPORT INFORMATION
  Report Type: 
  Country: None (occurrence: None)
  Receive Date: 20090312
  Receipt Date: 20090312
  Transmission Date: 20090719
  Serious: Yes (Hospitalization)
  Sender: FDA-Public Use
  Company Number: None

PATIENT
  Sex: Male
  Weight: 67 kg

DRUGS (14)
  1. PEMETREXED [Suspect]
     Indication: HEAD AND NECK CANCER
     Dosage: 500 MG/M2 Q 21 DAYS IV
     Route: 042
     Dates: start: 20090121, end: 20090304
  2. CETUXIMAB [Suspect]
     Indication: HEAD AND NECK CANCER
     Dosage: 250 MG/M2 Q WEEKLY IV
     Route: 042
     Dates: start: 20090121, end: 20090304
  3. VIT B12 [Concomitant]
  4. COLACE [Concomitant]
  5. FOLIC ACID [Concomitant]
  6. CIPROFLOXACIN HCL [Concomitant]
  7. FENTANYL-25 [Concomitant]
  8. LANSOPRAZOLE [Concomitant]
  9. MAGIC SWIZZLE [Concomitant]
  10. ZOFRAN [Concomitant]
  11. MIRALAX [Concomitant]
  12. SENNA [Concomitant]
  13. EFFEXSOR [Concomitant]
  14. RAD. THERAPY [Concomitant]

REACTIONS (6)
  - FATIGUE [None]
  - MUCOSAL INFLAMMATION [None]
  - NAUSEA [None]
  - PAIN [None]
  - RETCHING [None]
  - VOMITING [None]
